FAERS Safety Report 13498287 (Version 1)
Quarter: 2017Q2

REPORT INFORMATION
  Report Type: Spontaneous
  Country: GB (occurrence: GB)
  Receive Date: 20170429
  Receipt Date: 20170429
  Transmission Date: 20170830
  Serious: Yes (Other)
  Sender: FDA-Public Use
  Company Number: GB-TEIKOKU PHARMA USA-TPU2017-00233

PATIENT
  Sex: Female

DRUGS (1)
  1. VERSATIS [Suspect]
     Active Substance: LIDOCAINE
     Indication: MOTOR NEURONE DISEASE
     Route: 065
     Dates: start: 2016

REACTIONS (2)
  - Breakthrough pain [Unknown]
  - Dependence [Unknown]
